FAERS Safety Report 11270564 (Version 4)
Quarter: 2019Q4

REPORT INFORMATION
  Report Type: Spontaneous
  Country: JP (occurrence: JP)
  Receive Date: 20150714
  Receipt Date: 20191029
  Transmission Date: 20200122
  Serious: Yes (Hospitalization, Other)
  Sender: FDA-Public Use
  Company Number: JP-ALEXION-A201502543

PATIENT

DRUGS (3)
  1. FOLIAMIN [Concomitant]
     Active Substance: FOLIC ACID
     Indication: FOETAL EXPOSURE DURING PREGNANCY
     Dosage: 5 MG, DAILY
     Route: 064
     Dates: start: 20140718, end: 20141204
  2. SOLIRIS [Suspect]
     Active Substance: ECULIZUMAB
     Indication: EXPOSURE VIA BREAST MILK
     Dosage: 900 MG, Q2W
     Route: 063
     Dates: start: 20141217
  3. SOLIRIS [Suspect]
     Active Substance: ECULIZUMAB
     Indication: FOETAL EXPOSURE DURING PREGNANCY
     Dosage: 900 MG, Q2W
     Route: 064
     Dates: end: 20141203

REACTIONS (3)
  - Exposure via breast milk [Unknown]
  - Premature baby [Unknown]
  - Foetal exposure during pregnancy [Unknown]

NARRATIVE: CASE EVENT DATE: 20141204
